FAERS Safety Report 4277036-7 (Version None)
Quarter: 2004Q1

REPORT INFORMATION
  Report Type: 
  Country: None (occurrence: None)
  Receive Date: 20040113
  Receipt Date: 20040105
  Transmission Date: 20041129
  Serious: Yes (Other)
  Sender: FDA-Public Use
  Company Number: B0318660A

PATIENT
  Sex: Female

DRUGS (3)
  1. ZIDOVUDINE [Suspect]
     Indication: HIV INFECTION
  2. LAMIVUDINE [Concomitant]
  3. NELFINAVIR MESYLTE [Concomitant]

REACTIONS (2)
  - CONGESTIVE CARDIOMYOPATHY [None]
  - MITOCHONDRIAL TOXICITY [None]
